FAERS Safety Report 12970168 (Version 1)
Quarter: 2016Q4

REPORT INFORMATION
  Report Type: Spontaneous
  Country: US (occurrence: US)
  Receive Date: 20161123
  Receipt Date: 20161123
  Transmission Date: 20170207
  Serious: Yes (Other)
  Sender: FDA-Public Use
  Company Number: US-JNJFOC-20161123693

PATIENT
  Sex: Female

DRUGS (1)
  1. RISPERDAL [Suspect]
     Active Substance: RISPERIDONE
     Indication: HALLUCINATION
     Dosage: TWO YELLOW PILLS A DAY
     Route: 048

REACTIONS (5)
  - Brain neoplasm malignant [Unknown]
  - Off label use [Unknown]
  - Product use issue [Unknown]
  - Memory impairment [Unknown]
  - Weight increased [Unknown]
